FAERS Safety Report 18817856 (Version 4)
Quarter: 2021Q2

REPORT INFORMATION
  Report Type: Report from Study
  Country: GB (occurrence: GB)
  Receive Date: 20210201
  Receipt Date: 20210408
  Transmission Date: 20210717
  Serious: Yes (Other)
  Sender: FDA-Public Use
  Company Number: GB-JNJFOC-20210122655

PATIENT
  Age: 8 Decade
  Sex: Female

DRUGS (9)
  1. CLOPIDOGREL [Concomitant]
     Active Substance: CLOPIDOGREL BISULFATE
  2. LANSOPRAZOLE. [Concomitant]
     Active Substance: LANSOPRAZOLE
  3. DOCUSATE [Concomitant]
     Active Substance: DOCUSATE
  4. STELARA [Suspect]
     Active Substance: USTEKINUMAB
     Indication: PSORIATIC ARTHROPATHY
     Route: 058
     Dates: start: 20200225
  5. MELOXICAM. [Concomitant]
     Active Substance: MELOXICAM
  6. STELARA [Suspect]
     Active Substance: USTEKINUMAB
  7. CANDESARTAN. [Concomitant]
     Active Substance: CANDESARTAN
  8. INSULIN [Concomitant]
     Active Substance: INSULIN NOS
  9. IRON [Concomitant]
     Active Substance: IRON

REACTIONS (21)
  - Pain [Unknown]
  - Fatigue [Unknown]
  - Neck pain [Recovered/Resolved]
  - Oropharyngeal pain [Recovered/Resolved]
  - Headache [Not Recovered/Not Resolved]
  - Peripheral swelling [Unknown]
  - Dyspnoea [Unknown]
  - Skin mass [Unknown]
  - Joint stiffness [Not Recovered/Not Resolved]
  - Joint swelling [Not Recovered/Not Resolved]
  - Psoriasis [Recovered/Resolved]
  - Arthropathy [Unknown]
  - Pulmonary oedema [Recovering/Resolving]
  - Breast mass [Unknown]
  - Dry eye [Unknown]
  - Lip swelling [Unknown]
  - Hyperhidrosis [Unknown]
  - Spinal pain [Unknown]
  - Adverse event [Unknown]
  - Arthralgia [Not Recovered/Not Resolved]
  - Rash [Unknown]
